FAERS Safety Report 17542692 (Version 2)
Quarter: 2020Q1

REPORT INFORMATION
  Report Type: Spontaneous
  Country: US (occurrence: US)
  Receive Date: 20200315
  Receipt Date: 20200320
  Transmission Date: 20200409
  Serious: No
  Sender: FDA-Public Use
  Company Number: US-B.I. PHARMACEUTICALS,INC./RIDGEFIELD-2020-BI-014443

PATIENT
  Sex: Female

DRUGS (1)
  1. SPIRIVA [Suspect]
     Active Substance: TIOTROPIUM BROMIDE MONOHYDRATE
     Indication: PRODUCT USED FOR UNKNOWN INDICATION
     Route: 065

REACTIONS (6)
  - Product deposit [Unknown]
  - Product use complaint [Unknown]
  - Dyspnoea [Recovered/Resolved]
  - Paraesthesia [Unknown]
  - Cough [Recovered/Resolved]
  - Product impurity [Unknown]

NARRATIVE: CASE EVENT DATE: 201910
